FAERS Safety Report 7016736-2 (Version None)
Quarter: 2010Q3

REPORT INFORMATION
  Report Type: 
  Country: None (occurrence: None)
  Receive Date: 20100927
  Receipt Date: 20100917
  Transmission Date: 20110219
  Serious: Yes (Hospitalization)
  Sender: FDA-Public Use
  Company Number: CO-WYE-H17617910

PATIENT
  Sex: Male

DRUGS (9)
  1. RAPAMUNE [Suspect]
     Indication: PROPHYLAXIS AGAINST TRANSPLANT REJECTION
     Route: 048
     Dates: start: 20060801
  2. GLIBENCLAMIDE [Concomitant]
     Indication: DIABETES MELLITUS
     Dates: start: 20060701
  3. ENALAPRIL MALEATE [Concomitant]
     Indication: HYPERTENSION
     Dates: start: 20060101
  4. CELLCEPT [Concomitant]
  5. LOVASTATIN [Concomitant]
     Indication: ANTICOAGULANT THERAPY
     Dates: start: 20060101
  6. OMEPRAZOLE [Concomitant]
     Indication: PROPHYLAXIS AGAINST GASTROINTESTINAL ULCER
     Dates: start: 20060101, end: 20100601
  7. PREDNISOLONE [Concomitant]
     Indication: PROPHYLAXIS AGAINST TRANSPLANT REJECTION
     Dates: start: 20060101
  8. METFORMIN [Concomitant]
     Indication: DIABETES MELLITUS
     Dates: start: 20060701
  9. DILTIAZEM [Concomitant]
     Indication: HYPERTENSION
     Dates: start: 20060101

REACTIONS (5)
  - BLOOD CREATININE INCREASED [None]
  - LOWER LIMB FRACTURE [None]
  - MYOCARDIAL INFARCTION [None]
  - POSTOPERATIVE WOUND INFECTION [None]
  - ROAD TRAFFIC ACCIDENT [None]
